FAERS Safety Report 14137709 (Version 1)
Quarter: 2017Q4

REPORT INFORMATION
  Report Type: Spontaneous
  Country: JP (occurrence: JP)
  Receive Date: 20171027
  Receipt Date: 20171027
  Transmission Date: 20180321
  Serious: Yes (Hospitalization, Other)
  Sender: FDA-Public Use
  Company Number: JP-GE HEALTHCARE LIFE SCIENCES-2017CSU003441

PATIENT

DRUGS (4)
  1. WARFARIN                           /00014803/ [Concomitant]
     Active Substance: WARFARIN
     Indication: ATRIAL FIBRILLATION
     Dosage: 1.5 MG, QD
     Route: 048
  2. HEPARIN [Concomitant]
     Active Substance: HEPARIN SODIUM
     Indication: ATRIAL FIBRILLATION
     Dosage: 5000 UNITS, BID
     Route: 058
  3. BAYASPIRIN [Concomitant]
     Active Substance: ASPIRIN
     Indication: ATRIAL FIBRILLATION
     Dosage: 100 MG, QD
     Route: 048
  4. OMNIPAQUE [Suspect]
     Active Substance: IOHEXOL
     Indication: SPINAL LIGAMENT OSSIFICATION
     Dosage: 10 ML, SINGLE
     Route: 037

REACTIONS (3)
  - Extradural haematoma [Recovered/Resolved]
  - Muscular weakness [Recovering/Resolving]
  - Testicular pain [Unknown]
